FAERS Safety Report 23453895 (Version 1)
Quarter: 2024Q1

REPORT INFORMATION
  Report Type: Other
  Country: DE (occurrence: None)
  Receive Date: 20240129
  Receipt Date: 20240129
  Transmission Date: 20240410
  Serious: No
  Sender: FDA-Public Use
  Company Number: DE-ROCHE-3475694

PATIENT
  Age: 52 Year
  Sex: Female

DRUGS (8)
  1. OCRELIZUMAB [Suspect]
     Active Substance: OCRELIZUMAB
     Indication: Relapsing multiple sclerosis
     Route: 042
     Dates: start: 20230524
  2. CITALOPRAM [Concomitant]
     Active Substance: CITALOPRAM HYDROBROMIDE
     Indication: Depression
     Route: 048
     Dates: start: 2021
  3. CHOLECALCIFEROL [Concomitant]
     Active Substance: CHOLECALCIFEROL
     Indication: Prophylaxis
     Dosage: DOSE: 20000?DOSE FREQUENCY: QS (EVERY WEEK)
     Route: 048
     Dates: start: 202201
  4. NOVALGIN (METAMIZOLE SODIUM) [Concomitant]
     Active Substance: METAMIZOLE SODIUM
     Dosage: DOSE: 500?DOSE FREQUENCY: PRN (AS NEEDED)
     Route: 048
  5. PREDNISOLONE [Concomitant]
     Active Substance: PREDNISOLONE
     Indication: Prophylaxis
     Dosage: DOSE FREQUENCY: ONCE
     Route: 042
     Dates: start: 20230524, end: 20230524
  6. PREDNISOLONE [Concomitant]
     Active Substance: PREDNISOLONE
     Dosage: DOSE FREQUENCY: ONCE
     Route: 042
     Dates: start: 20230607, end: 20230607
  7. DIMETHINDENE MALEATE [Concomitant]
     Active Substance: DIMETHINDENE MALEATE
     Indication: Prophylaxis
     Dosage: DOSE FREQUENCY: ONCE
     Route: 042
     Dates: start: 20230524, end: 20230524
  8. DIMETHINDENE MALEATE [Concomitant]
     Active Substance: DIMETHINDENE MALEATE
     Dosage: DOSE FREQUENCY: ONCE
     Route: 042
     Dates: start: 20230607, end: 20230607

REACTIONS (1)
  - COVID-19 [Recovered/Resolved]

NARRATIVE: CASE EVENT DATE: 20231213
